FAERS Safety Report 14762960 (Version 4)
Quarter: 2018Q3

REPORT INFORMATION
  Report Type: Spontaneous
  Country: US (occurrence: US)
  Receive Date: 20180416
  Receipt Date: 20180710
  Transmission Date: 20181010
  Serious: No
  Sender: FDA-Public Use
  Company Number: US-UNITED THERAPEUTICS-UNT-2017-018166

PATIENT
  Age: 79 Year
  Sex: Female
  Weight: 65.31 kg

DRUGS (10)
  1. TYVASO [Suspect]
     Active Substance: TREPROSTINIL
     Indication: PULMONARY ARTERIAL HYPERTENSION
     Dosage: 6 ?G, QID
     Dates: start: 20171219
  2. TYVASO [Suspect]
     Active Substance: TREPROSTINIL
     Dosage: UNK
  3. TYVASO [Suspect]
     Active Substance: TREPROSTINIL
     Dosage: 18?54 MICROGRAMS, QID
  4. TYVASO [Suspect]
     Active Substance: TREPROSTINIL
     Dosage: UNK
  5. OPSUMIT [Concomitant]
     Active Substance: MACITENTAN
     Indication: PRODUCT USED FOR UNKNOWN INDICATION
     Route: 065
  6. TYVASO [Suspect]
     Active Substance: TREPROSTINIL
     Dosage: UNK
  7. TYVASO [Suspect]
     Active Substance: TREPROSTINIL
     Dosage: UNK
  8. ADEMPAS [Concomitant]
     Active Substance: RIOCIGUAT
     Indication: PRODUCT USED FOR UNKNOWN INDICATION
     Route: 065
  9. TYVASO [Suspect]
     Active Substance: TREPROSTINIL
     Dosage: UNK
  10. AMLODIPINE [Concomitant]
     Active Substance: AMLODIPINE BESYLATE
     Indication: PRODUCT USED FOR UNKNOWN INDICATION
     Route: 065

REACTIONS (24)
  - Dizziness [Unknown]
  - Hypotension [Unknown]
  - Nasopharyngitis [Unknown]
  - Muscle spasms [Unknown]
  - Sputum discoloured [Unknown]
  - Dyspepsia [Unknown]
  - Heart rate increased [Unknown]
  - Productive cough [Not Recovered/Not Resolved]
  - Decreased appetite [Unknown]
  - Paranasal sinus discomfort [Not Recovered/Not Resolved]
  - Arthralgia [Unknown]
  - Blood pressure abnormal [Unknown]
  - Lethargy [Unknown]
  - Dysgeusia [Unknown]
  - Sinusitis [Unknown]
  - Oropharyngeal pain [Unknown]
  - Head discomfort [Unknown]
  - Ear discomfort [Unknown]
  - Nasal congestion [Recovering/Resolving]
  - Cough [Not Recovered/Not Resolved]
  - Flank pain [Unknown]
  - Respiratory rate increased [Unknown]
  - Paranasal sinus hyposecretion [Unknown]
  - Palpitations [Not Recovered/Not Resolved]

NARRATIVE: CASE EVENT DATE: 201712
